FAERS Safety Report 8879993 (Version 1)
Quarter: 2012Q4

REPORT INFORMATION
  Report Type: 
  Country: PT (occurrence: PT)
  Receive Date: 20121101
  Receipt Date: 20121101
  Transmission Date: 20130627
  Serious: Yes (Other)
  Sender: FDA-Public Use
  Company Number: PT-AMGEN-PRTSP2012031517

PATIENT
  Age: 52 Year
  Sex: Male
  Weight: 83 kg

DRUGS (5)
  1. ENBREL [Suspect]
     Indication: RHEUMATOID ARTHRITIS
     Dosage: 50 mg, UNK
     Route: 058
     Dates: start: 20101015, end: 201111
  2. ENBREL [Suspect]
     Dosage: 50 mg, UNK
     Route: 058
     Dates: start: 20111222, end: 201201
  3. ENBREL [Suspect]
     Dosage: 50 mg, UNK
     Route: 058
     Dates: start: 20120302, end: 201205
  4. METHOTREXATE [Concomitant]
     Indication: RHEUMATOID ARTHRITIS
     Dosage: UNK
     Dates: start: 200710
  5. PANTOC [Concomitant]
     Dosage: UNK

REACTIONS (1)
  - Mycosis fungoides [Recovered/Resolved]
